FAERS Safety Report 4634440-2 (Version None)
Quarter: 2005Q2

REPORT INFORMATION
  Report Type: 
  Country: None (occurrence: None)
  Receive Date: 20050412
  Receipt Date: 20050225
  Transmission Date: 20051028
  Serious: Yes (Other)
  Sender: FDA-Public Use
  Company Number: 2005040699

PATIENT
  Sex: Male

DRUGS (1)
  1. EPAMIN (PHENYTOIN SODIUM) [Suspect]
     Indication: ILL-DEFINED DISORDER

REACTIONS (3)
  - ANTICONVULSANT DRUG LEVEL DECREASED [None]
  - CONVULSION [None]
  - PHARMACEUTICAL PRODUCT COUNTERFEIT [None]
